FAERS Safety Report 15288730 (Version 1)
Quarter: 2018Q3

REPORT INFORMATION
  Report Type: Report from Study
  Country: IL (occurrence: IL)
  Receive Date: 20180817
  Receipt Date: 20180817
  Transmission Date: 20181010
  Serious: Yes (Other)
  Sender: FDA-Public Use
  Company Number: IL-GLAXOSMITHKLINE-IL2018GSK148731

PATIENT

DRUGS (1)
  1. ACITRETIN. [Suspect]
     Active Substance: ACITRETIN
     Indication: MYCOSIS FUNGOIDES
     Dosage: 0.2 MG/KG, UNK
     Route: 065

REACTIONS (2)
  - Suicide attempt [Unknown]
  - Depression [Unknown]
